FAERS Safety Report 17519117 (Version 1)
Quarter: 2020Q1

REPORT INFORMATION
  Report Type: Spontaneous
  Country: CA (occurrence: CA)
  Receive Date: 20200310
  Receipt Date: 20200310
  Transmission Date: 20200409
  Serious: Yes (Hospitalization, Other)
  Sender: FDA-Public Use
  Company Number: CA-SAMSUNG BIOEPIS-SB-2020-07643

PATIENT
  Sex: Female

DRUGS (15)
  1. INFLIXIMAB [Suspect]
     Active Substance: INFLIXIMAB
     Indication: COLITIS ULCERATIVE
     Dosage: UNKNOWN
     Route: 065
  2. INFLIXIMAB [Suspect]
     Active Substance: INFLIXIMAB
     Indication: COLITIS
  3. STELARA [Suspect]
     Active Substance: USTEKINUMAB
     Indication: COLITIS ULCERATIVE
     Dosage: UNKNOWN?SOLUTION SUBCUTANEOUS
     Route: 058
  4. ELIQUIS [Suspect]
     Active Substance: APIXABAN
     Indication: COLITIS ULCERATIVE
     Dosage: UNKNOWN
     Route: 065
  5. ELIQUIS [Suspect]
     Active Substance: APIXABAN
     Indication: COLITIS
     Route: 065
  6. PREDNISONE. [Suspect]
     Active Substance: PREDNISONE
     Indication: COLITIS ULCERATIVE
     Route: 065
  7. PREDNISONE. [Suspect]
     Active Substance: PREDNISONE
     Indication: COLITIS
     Route: 065
  8. VEDOLIZUMAB [Suspect]
     Active Substance: VEDOLIZUMAB
     Indication: COLITIS
     Dosage: UNKNOWN
     Route: 065
  9. CICLOSPORIN [Suspect]
     Active Substance: CYCLOSPORINE
     Indication: COLITIS ULCERATIVE
     Dosage: UNKNOWN
     Route: 065
  10. CICLOSPORIN [Suspect]
     Active Substance: CYCLOSPORINE
     Indication: COLITIS
  11. FENTANYL. [Concomitant]
     Active Substance: FENTANYL
     Indication: PRODUCT USED FOR UNKNOWN INDICATION
     Route: 042
  12. VEDOLIZUMAB [Suspect]
     Active Substance: VEDOLIZUMAB
     Dosage: UNKNOWN
     Route: 065
  13. STELARA [Suspect]
     Active Substance: USTEKINUMAB
     Indication: COLITIS
     Dosage: UNKNOWN
     Route: 065
  14. VEDOLIZUMAB [Suspect]
     Active Substance: VEDOLIZUMAB
     Indication: COLITIS ULCERATIVE
     Dosage: UNKNOWN
     Route: 042
  15. FENTANYL. [Concomitant]
     Active Substance: FENTANYL
     Route: 042

REACTIONS (24)
  - Haematochezia [Unknown]
  - Hypersensitivity [Unknown]
  - Condition aggravated [Unknown]
  - Lymphocyte count decreased [Unknown]
  - Mean platelet volume decreased [Unknown]
  - Platelet count increased [Unknown]
  - Colitis ulcerative [Unknown]
  - Haematocrit decreased [Unknown]
  - Mean cell haemoglobin concentration decreased [Unknown]
  - C-reactive protein increased [Unknown]
  - Colitis [Unknown]
  - Pulmonary embolism [Unknown]
  - Off label use [Unknown]
  - Monocyte count decreased [Unknown]
  - Drug ineffective [Unknown]
  - Intentional product use issue [Unknown]
  - Abdominal lymphadenopathy [Unknown]
  - Haemoglobin decreased [Unknown]
  - Red cell distribution width increased [Unknown]
  - Product use in unapproved indication [Unknown]
  - Gamma-glutamyltransferase increased [Unknown]
  - Red blood cell count decreased [Unknown]
  - Blood cholesterol increased [Unknown]
  - Neutrophil count increased [Unknown]
